FAERS Safety Report 16566909 (Version 2)
Quarter: 2019Q3

REPORT INFORMATION
  Report Type: Report from Study
  Country: JP (occurrence: JP)
  Receive Date: 20190712
  Receipt Date: 20190913
  Transmission Date: 20191004
  Serious: No
  Sender: FDA-Public Use
  Company Number: JP-JT-EVA201902177KERYXP-001

PATIENT
  Age: 80 Year
  Sex: Male
  Weight: 52.9 kg

DRUGS (5)
  1. PARIET [Concomitant]
     Active Substance: RABEPRAZOLE SODIUM
     Indication: HYPERCHLORHYDRIA
     Dosage: 10 MILLIGRAM, QD
     Route: 048
  2. NESP [Concomitant]
     Active Substance: DARBEPOETIN ALFA
     Indication: NEPHROGENIC ANAEMIA
     Dosage: 120 MICROGRAM, ONE TIME DOSE
     Route: 065
  3. NESP [Concomitant]
     Active Substance: DARBEPOETIN ALFA
     Dosage: 120 MICROGRAM, ONE TIME DOSE
     Route: 065
  4. RIONA [Suspect]
     Active Substance: FERRIC CITRATE ANHYDROUS
     Indication: HYPERPHOSPHATAEMIA
     Dosage: 250 MILLIGRAM, QD
     Route: 048
     Dates: start: 20171222, end: 20181211
  5. CALCITRIOL. [Concomitant]
     Active Substance: CALCITRIOL
     Indication: HYPERPARATHYROIDISM SECONDARY
     Dosage: 0.25 MICROGRAM, QD
     Route: 048
     Dates: start: 20171218

REACTIONS (1)
  - No adverse event [Unknown]
